FAERS Safety Report 21356033 (Version 2)
Quarter: 2022Q4

REPORT INFORMATION
  Report Type: Spontaneous
  Country: US (occurrence: US)
  Receive Date: 20220920
  Receipt Date: 20221018
  Transmission Date: 20230113
  Serious: No
  Sender: FDA-Public Use
  Company Number: US-JNJFOC-20220908652

PATIENT
  Age: 6 Decade
  Sex: Female

DRUGS (7)
  1. WOMENS ROGAINE UNSCENTED [Suspect]
     Active Substance: MINOXIDIL
     Indication: Alopecia
     Dosage: HALF CAPFUL
     Route: 061
     Dates: start: 20160430
  2. WOMENS ROGAINE UNSCENTED [Suspect]
     Active Substance: MINOXIDIL
     Dosage: HALF CAPFUL
     Route: 061
  3. WOMENS ROGAINE UNSCENTED [Suspect]
     Active Substance: MINOXIDIL
     Dosage: HALF CAPFUL
     Route: 061
  4. WOMENS ROGAINE UNSCENTED [Suspect]
     Active Substance: MINOXIDIL
     Dosage: HALF CAPFUL
     Route: 061
  5. WOMENS ROGAINE [Suspect]
     Active Substance: MINOXIDIL
     Indication: Product used for unknown indication
     Dosage: TWICE A DAY
     Route: 061
     Dates: start: 20160430
  6. WOMENS ROGAINE [Suspect]
     Active Substance: MINOXIDIL
     Dosage: TWICE A DAY
     Route: 061
  7. WOMENS ROGAINE [Suspect]
     Active Substance: MINOXIDIL
     Dosage: TWICE A DAY
     Route: 061

REACTIONS (1)
  - Alopecia [Not Recovered/Not Resolved]
